FAERS Safety Report 25990879 (Version 1)
Quarter: 2025Q4

REPORT INFORMATION
  Report Type: Spontaneous
  Country: US (occurrence: US)
  Receive Date: 20251103
  Receipt Date: 20251103
  Transmission Date: 20260117
  Serious: Yes (Hospitalization, Other)
  Sender: NOVO NORDISK
  Company Number: US-NOVOPROD-1544945

PATIENT
  Age: 81 Year
  Sex: Female

DRUGS (3)
  1. TRESIBA [Suspect]
     Active Substance: INSULIN DEGLUDEC
     Indication: Product used for unknown indication
     Dosage: UNK
     Dates: start: 20160923
  2. TRESIBA [Suspect]
     Active Substance: INSULIN DEGLUDEC
     Dosage: UNK (RE-STARTED)
     Dates: start: 201903
  3. HUMALOG [Concomitant]
     Active Substance: INSULIN LISPRO
     Indication: Product used for unknown indication
     Dosage: UNK

REACTIONS (6)
  - Fall [Recovered/Resolved]
  - Head injury [Recovered/Resolved]
  - Joint injury [Recovered/Resolved]
  - Loss of consciousness [Recovered/Resolved]
  - Eye swelling [Unknown]
  - Herpes zoster [Unknown]

NARRATIVE: CASE EVENT DATE: 20171201
